FAERS Safety Report 8630231 (Version 2)
Quarter: 2013Q2

REPORT INFORMATION
  Report Type: Spontaneous
  Country: US (occurrence: US)
  Receive Date: 20120622
  Receipt Date: 20130416
  Transmission Date: 20140414
  Serious: Yes (Hospitalization, Other)
  Sender: FDA-Public Use
  Company Number: US-ROCHE-1027709

PATIENT
  Age: 35 Year
  Sex: Female
  Weight: 92.16 kg

DRUGS (1)
  1. ACCUTANE [Suspect]
     Indication: ACNE CYSTIC
     Route: 065
     Dates: start: 198403, end: 198411

REACTIONS (6)
  - Crohn^s disease [Unknown]
  - Female genital tract fistula [Unknown]
  - Intestinal obstruction [Unknown]
  - Anal fissure [Unknown]
  - Fibromyalgia [Unknown]
  - Colonic fistula [Unknown]
